FAERS Safety Report 6716061-0 (Version None)
Quarter: 2010Q2

REPORT INFORMATION
  Report Type: 
  Country: None (occurrence: None)
  Receive Date: 20100507
  Receipt Date: 20100503
  Transmission Date: 20101027
  Serious: Yes (Other)
  Sender: FDA-Public Use
  Company Number: A0857192A

PATIENT
  Sex: Male

DRUGS (4)
  1. ADVAIR DISKUS 100/50 [Suspect]
     Indication: ASTHMA
     Dosage: 2PUFF TWICE PER DAY
     Route: 055
  2. VENTOLIN [Concomitant]
     Indication: ASTHMA
     Route: 065
  3. BECONASE [Concomitant]
     Route: 065
  4. UNKNOWN MEDICATION [Concomitant]
     Indication: PSORIASIS
     Route: 065

REACTIONS (5)
  - ANXIETY [None]
  - DRUG INEFFECTIVE [None]
  - PRODUCT QUALITY ISSUE [None]
  - PSORIASIS [None]
  - STRESS [None]
